FAERS Safety Report 6030463-X (Version None)
Quarter: 2009Q1

REPORT INFORMATION
  Report Type: 
  Country: None (occurrence: None)
  Receive Date: 20090105
  Receipt Date: 20090105
  Transmission Date: 20090719
  Serious: Yes (Hospitalization)
  Sender: FDA-Public Use
  Company Number: None

PATIENT
  Sex: Female
  Weight: 55 kg

DRUGS (4)
  1. CISPLATIN [Suspect]
     Dosage: 75 MG
  2. DOXORUBICIN HYDROCHLORIDE [Suspect]
     Dosage: 67 MG
  3. G-CSF (FILGRASTIM, AMGEN) [Suspect]
     Dosage: 750 MCG
  4. TAXOL [Suspect]
     Dosage: 241 MG

REACTIONS (2)
  - FEBRILE NEUTROPENIA [None]
  - LEUKOPENIA [None]
